FAERS Safety Report 18994876 (Version 1)
Quarter: 2021Q1

REPORT INFORMATION
  Report Type: Spontaneous
  Country: US (occurrence: US)
  Receive Date: 20210310
  Receipt Date: 20210310
  Transmission Date: 20210420
  Serious: No
  Sender: FDA-Public Use
  Company Number: US-009507513-2103USA001756

PATIENT
  Sex: Female

DRUGS (1)
  1. CUBICIN [Suspect]
     Active Substance: DAPTOMYCIN
     Indication: DRUG REACTION WITH EOSINOPHILIA AND SYSTEMIC SYMPTOMS

REACTIONS (1)
  - Product use in unapproved indication [Unknown]
